FAERS Safety Report 21783305 (Version 1)
Quarter: 2022Q4

REPORT INFORMATION
  Report Type: Spontaneous
  Country: US (occurrence: None)
  Receive Date: 20221223
  Receipt Date: 20221223
  Transmission Date: 20230112
  Serious: Yes (Hospitalization)
  Sender: FDA-Public Use
  Company Number: None

PATIENT

DRUGS (10)
  1. EMPAGLIFLOZIN [Suspect]
     Active Substance: EMPAGLIFLOZIN
  2. METOPROLOL SUCCINATE [Suspect]
     Active Substance: METOPROLOL SUCCINATE
  3. PRASUGREL [Suspect]
     Active Substance: PRASUGREL
  4. ASPIRIN [Suspect]
     Active Substance: ASPIRIN
  5. INSULIN GLARGINE [Suspect]
     Active Substance: INSULIN GLARGINE
  6. JARDIANCE [Suspect]
     Active Substance: EMPAGLIFLOZIN
  7. EZETIMIBE [Suspect]
     Active Substance: EZETIMIBE
  8. METFORMIN HYDROCHLORIDE [Suspect]
     Active Substance: METFORMIN HYDROCHLORIDE
  9. FENOFIBRATE [Suspect]
     Active Substance: FENOFIBRATE
  10. ATORVASTATIN CALCIUM [Suspect]
     Active Substance: ATORVASTATIN CALCIUM

REACTIONS (8)
  - Asthenia [None]
  - Dyspnoea [None]
  - Blood bicarbonate decreased [None]
  - Blood glucose decreased [None]
  - Anion gap increased [None]
  - Sepsis [None]
  - Diabetic ketoacidosis [None]
  - Acidosis [None]
